FAERS Safety Report 7469188-2 (Version None)
Quarter: 2011Q2

REPORT INFORMATION
  Report Type: 
  Country: None (occurrence: None)
  Receive Date: 20110510
  Receipt Date: 20110426
  Transmission Date: 20111010
  Serious: Yes (Hospitalization)
  Sender: FDA-Public Use
  Company Number: FR-JNJFOC-20110411459

PATIENT
  Age: 41 Year
  Sex: Female

DRUGS (3)
  1. REMICADE [Suspect]
     Route: 065
  2. REMICADE [Suspect]
     Indication: ANKYLOSING SPONDYLITIS
     Route: 065
  3. FLUOXETINE [Concomitant]
     Indication: DEPRESSION

REACTIONS (3)
  - REVERSIBLE ISCHAEMIC NEUROLOGICAL DEFICIT [None]
  - EPISTAXIS [None]
  - SINUS TACHYCARDIA [None]
